FAERS Safety Report 10729115 (Version 1)
Quarter: 2015Q1

REPORT INFORMATION
  Report Type: Spontaneous
  Country: FR (occurrence: FR)
  Receive Date: 20150122
  Receipt Date: 20150122
  Transmission Date: 20150721
  Serious: Yes (Hospitalization)
  Sender: FDA-Public Use
  Company Number: FR-009507513-1501FRA003734

PATIENT
  Age: 27 Year
  Sex: Female

DRUGS (3)
  1. CETROTIDE [Suspect]
     Active Substance: CETRORELIX ACETATE
     Dosage: 0.5 MG (2 DF), QD
     Route: 058
     Dates: start: 20140212, end: 20140217
  2. FOLLITROPIN BETA [Suspect]
     Active Substance: FOLLITROPIN
     Dosage: 150 IU, QD
     Route: 058
     Dates: start: 20140208, end: 20140217
  3. GONADOTROPHINE CHORIONIQUE ENDO 1500 UI/1ML [Suspect]
     Active Substance: GONADOTROPHIN, CHORIONIC
     Dosage: 5000 IU, ONCE
     Route: 030
     Dates: start: 20140218

REACTIONS (2)
  - Ascites [Recovered/Resolved]
  - Ovarian hyperstimulation syndrome [Recovered/Resolved]

NARRATIVE: CASE EVENT DATE: 20140313
